FAERS Safety Report 16001519 (Version 2)
Quarter: 2019Q3

REPORT INFORMATION
  Report Type: Spontaneous
  Country: US (occurrence: US)
  Receive Date: 20190225
  Receipt Date: 20190903
  Transmission Date: 20191004
  Serious: Yes (Other)
  Sender: FDA-Public Use
  Company Number: US-MYLANLABS-2019M1015629

PATIENT
  Sex: Male
  Weight: 108.86 kg

DRUGS (2)
  1. CARBIDOPA/LEVODOPA [Suspect]
     Active Substance: CARBIDOPA\LEVODOPA
     Indication: PARKINSON^S DISEASE
     Dosage: 1 DOSAGE FORM, PM (25-100MG TABLET BY MOUTH AT NIGHT)
     Route: 048
  2. CARBIDOPA/LEVODOPA [Suspect]
     Active Substance: CARBIDOPA\LEVODOPA
     Indication: PARKINSON^S DISEASE
     Dosage: 3 DOSAGE FORM, TID
     Route: 048

REACTIONS (5)
  - Therapeutic product effect delayed [Unknown]
  - Balance disorder [Not Recovered/Not Resolved]
  - Upper limb fracture [Recovered/Resolved]
  - Body height decreased [Unknown]
  - Fall [Unknown]
